FAERS Safety Report 12951881 (Version 1)
Quarter: 2016Q4

REPORT INFORMATION
  Report Type: Spontaneous
  Country: US (occurrence: US)
  Receive Date: 20161117
  Receipt Date: 20161117
  Transmission Date: 20170207
  Serious: No
  Sender: FDA-Public Use
  Company Number: US-CELGENEUS-USA-2016113377

PATIENT
  Sex: Male

DRUGS (1)
  1. REVLIMID [Suspect]
     Active Substance: LENALIDOMIDE
     Indication: B-CELL LYMPHOMA
     Dosage: 25 MILLIGRAM
     Route: 048
     Dates: start: 201610

REACTIONS (6)
  - Fatigue [Unknown]
  - Malaise [Unknown]
  - Discomfort [Unknown]
  - Nasopharyngitis [Unknown]
  - Gait disturbance [Unknown]
  - Cough [Unknown]

NARRATIVE: CASE EVENT DATE: 2016
